FAERS Safety Report 7692647-4 (Version None)
Quarter: 2011Q3

REPORT INFORMATION
  Report Type: 
  Country: None (occurrence: None)
  Receive Date: 20110819
  Receipt Date: 20110808
  Transmission Date: 20111222
  Serious: Yes (Other)
  Sender: FDA-Public Use
  Company Number: US-RANBAXY-2011US-46715

PATIENT
  Age: 34 Year
  Sex: Male

DRUGS (5)
  1. GABAPENTIN [Suspect]
     Dosage: 200 MG/DAY
     Route: 065
  2. DULOXETIME HYDROCHLORIDE [Concomitant]
     Indication: PRODUCT USED FOR UNKNOWN INDICATION
     Dosage: UNK
     Route: 065
  3. GABAPENTIN [Suspect]
     Indication: SOCIAL PHOBIA
     Dosage: 100 MG PER EVENING
     Route: 065
  4. GABAPENTIN [Suspect]
     Dosage: INCREASED TO 300 MG PER EVENING  AND THEN GRADUALLY WITHDRAWN
  5. BUPROPION HCL [Concomitant]
     Indication: PRODUCT USED FOR UNKNOWN INDICATION
     Dosage: UNK
     Route: 065

REACTIONS (3)
  - SEXUAL DYSFUNCTION [None]
  - LIBIDO DECREASED [None]
  - OFF LABEL USE [None]
